FAERS Safety Report 4320243-5 (Version None)
Quarter: 2004Q1

REPORT INFORMATION
  Report Type: 
  Country: None (occurrence: None)
  Receive Date: 20040317
  Receipt Date: 20040302
  Transmission Date: 20041129
  Serious: No
  Sender: FDA-Public Use
  Company Number: 2004AP01376

PATIENT
  Age: 71 Year
  Sex: Male

DRUGS (19)
  1. IRESSA [Suspect]
     Indication: LUNG SQUAMOUS CELL CARCINOMA STAGE UNSPECIFIED
     Dosage: 250 MG DAILY PO
     Route: 048
     Dates: start: 20031010, end: 20031019
  2. IRESSA [Suspect]
     Indication: NON-SMALL CELL LUNG CANCER
     Dosage: 250 MG DAILY PO
     Route: 048
     Dates: start: 20031010, end: 20031019
  3. AMRUBICIN [Suspect]
     Dates: start: 20030811, end: 20030906
  4. DOCETAXEL [Suspect]
     Dates: start: 20030717
  5. LOXONIN [Concomitant]
  6. MAGNESIUM OXIDE [Concomitant]
  7. SPELEAR [Concomitant]
  8. TOUGHMAC E [Concomitant]
  9. GASMOTIN [Concomitant]
  10. MYSLEE [Concomitant]
  11. PURSENNID [Concomitant]
  12. BUFFERIN [Concomitant]
  13. TAKEPRON [Concomitant]
  14. ZITHROMAX [Concomitant]
  15. CARBOPLATIN [Concomitant]
  16. PACLITAXEL [Concomitant]
  17. GEMCITABINE [Concomitant]
  18. VINORELBINE TARTRATE [Concomitant]
  19. RADIATION THERAPY [Concomitant]

REACTIONS (8)
  - ALVEOLITIS [None]
  - ATELECTASIS [None]
  - DYSPNOEA [None]
  - HAEMOPTYSIS [None]
  - LYMPHANGIOSIS CARCINOMATOSA [None]
  - PLEURAL EFFUSION [None]
  - PULMONARY ALVEOLAR HAEMORRHAGE [None]
  - PYREXIA [None]
